FAERS Safety Report 7964154-2 (Version None)
Quarter: 2011Q4

REPORT INFORMATION
  Report Type: 
  Country: None (occurrence: None)
  Receive Date: 20111208
  Receipt Date: 20111128
  Transmission Date: 20120403
  Serious: Yes (Life-Threatening)
  Sender: FDA-Public Use
  Company Number: FR-BRISTOL-MYERS SQUIBB COMPANY-16270746

PATIENT
  Age: 71 Year
  Sex: Male

DRUGS (8)
  1. GLUCOPHAGE [Suspect]
     Indication: DIABETES MELLITUS
     Dosage: FILM COATED TABLET
     Route: 048
     Dates: end: 20110101
  2. ASPIRIN [Concomitant]
     Dosage: POWDER FOR ORAL SOLUTION
     Route: 048
  3. PERINDOPRIL ERBUMINE [Concomitant]
     Dosage: FILM COATED TABLET
  4. NICARDIPINE HCL [Concomitant]
     Dosage: CAPSULE
  5. PLAVIX [Concomitant]
  6. CRESTOR [Concomitant]
     Dosage: FILM COATED TABLET
  7. LEVOTHYROXINE SODIUM [Concomitant]
     Dosage: TABLET
  8. LYRICA [Concomitant]
     Dosage: CAPSULE

REACTIONS (3)
  - RHABDOMYOLYSIS [None]
  - LACTIC ACIDOSIS [None]
  - RENAL FAILURE [None]
